FAERS Safety Report 4930702-X (Version None)
Quarter: 2006Q1

REPORT INFORMATION
  Report Type: 
  Country: None (occurrence: None)
  Receive Date: 20060227
  Receipt Date: 20060215
  Transmission Date: 20060701
  Serious: Yes (Hospitalization)
  Sender: FDA-Public Use
  Company Number: MEDI-0004175

PATIENT
  Age: 50 Year
  Sex: Male
  Weight: 68.0396 kg

DRUGS (19)
  1. ETHYOL [Suspect]
     Indication: CHEMOTHERAPY
     Dates: start: 20060111, end: 20060207
  2. ETHYOL [Suspect]
     Indication: RADIOTHERAPY
     Dates: start: 20060111, end: 20060207
  3. CISPLATIN [Concomitant]
  4. FLUOROURACIL [Concomitant]
  5. RADIATION THERAPY [Concomitant]
  6. LEVOXYL [Concomitant]
  7. KYTRIL [Concomitant]
  8. PEPCID [Concomitant]
  9. COMPAZINE [Concomitant]
  10. DURAGESIC-100 [Concomitant]
  11. SENOKOT [Concomitant]
  12. KLOR-CON [Concomitant]
  13. XANAX [Concomitant]
  14. OXYCODONE HCL [Concomitant]
  15. REGLAN [Concomitant]
  16. NYSTATIN [Concomitant]
  17. LACTULOSE [Concomitant]
  18. BAKING SODA AND SALT RINSE [Concomitant]
  19. ALLEGRA [Concomitant]

REACTIONS (4)
  - DEHYDRATION [None]
  - FEBRILE NEUTROPENIA [None]
  - VOMITING [None]
  - WEIGHT DECREASED [None]
